FAERS Safety Report 4633907-0 (Version None)
Quarter: 2005Q2

REPORT INFORMATION
  Report Type: 
  Country: None (occurrence: None)
  Receive Date: 20050407
  Receipt Date: 20050325
  Transmission Date: 20051028
  Serious: Yes (Hospitalization)
  Sender: FDA-Public Use
  Company Number: 05P-056-0295532-00

PATIENT
  Age: 65 Year
  Sex: Female

DRUGS (9)
  1. BIAXIN [Suspect]
     Indication: BRONCHITIS
     Dosage: 500 MG, 2 IN 1 D, ORAL
     Route: 049
     Dates: start: 20050103, end: 20050110
  2. ACENOCOUMAROL [Concomitant]
  3. ISOBAR [Concomitant]
  4. CARBOCISTEINE [Concomitant]
  5. ACETAMINOPHEN [Concomitant]
  6. VEINOTONYL [Concomitant]
  7. SYMBICORT [Concomitant]
  8. LATANOPROST [Concomitant]
  9. SALBUTAMOL [Concomitant]

REACTIONS (10)
  - CONSTIPATION [None]
  - DYSPEPSIA [None]
  - FEEDING DISORDER [None]
  - FLATULENCE [None]
  - HYPONATRAEMIA [None]
  - INFLAMMATION [None]
  - INTERSTITIAL LUNG DISEASE [None]
  - NAUSEA [None]
  - RALES [None]
  - VOMITING [None]
